FAERS Safety Report 16053888 (Version 1)
Quarter: 2019Q1

REPORT INFORMATION
  Report Type: Spontaneous
  Country: JP (occurrence: JP)
  Receive Date: 20190308
  Receipt Date: 20190308
  Transmission Date: 20190418
  Serious: Yes (Other)
  Sender: FDA-Public Use
  Company Number: JP-PFIZER INC-2019100047

PATIENT
  Age: 58 Year
  Sex: Female

DRUGS (3)
  1. PALBOCICLIB [Suspect]
     Active Substance: PALBOCICLIB
     Indication: METASTASES TO BONE
     Dosage: 100 MG, CYCLIC (100 MG/DAY, ORALLY, 3 WEEKS, FOLLOWED BY 1 WEEK OFF)
     Route: 048
     Dates: start: 201804
  2. FULVESTRANT. [Suspect]
     Active Substance: FULVESTRANT
     Indication: METASTASES TO BONE
     Dosage: 500 MG, CYCLIC (500 MG, INTRAMUSCULARLY, EVERY 14 DAYS FOR THE FIRST THREE INJECTIONS AND THEN EVERY
     Route: 030
     Dates: start: 201804
  3. PALBOCICLIB [Suspect]
     Active Substance: PALBOCICLIB
     Dosage: UNK
     Dates: start: 201807

REACTIONS (4)
  - Sensitisation [Recovering/Resolving]
  - Gastrointestinal toxicity [Recovering/Resolving]
  - Product use in unapproved indication [Unknown]
  - Colitis [Recovering/Resolving]
